FAERS Safety Report 8965554 (Version 1)
Quarter: 2012Q4

REPORT INFORMATION
  Report Type: 
  Country: BE (occurrence: None)
  Receive Date: 20121205
  Receipt Date: 20121205
  Transmission Date: 20130627
  Serious: Yes (Death, Hospitalization, Other)
  Sender: FDA-Public Use
  Company Number: DAV-AE-MTX-12-77

PATIENT
  Sex: Female

DRUGS (1)
  1. METHOTREXATE [Suspect]
     Indication: CHORIOCARCINOMA
     Dosage: 4 hours on day 1, every week.

REACTIONS (7)
  - Pancytopenia [None]
  - Hyperosmolar state [None]
  - Ototoxicity [None]
  - Endocarditis [None]
  - Neutropenic sepsis [None]
  - Septic embolus [None]
  - Cerebral artery embolism [None]
